FAERS Safety Report 20866096 (Version 1)
Quarter: 2022Q2

REPORT INFORMATION
  Report Type: Spontaneous
  Country: US (occurrence: None)
  Receive Date: 20220523
  Receipt Date: 20220523
  Transmission Date: 20220721
  Serious: Yes (Hospitalization)
  Sender: FDA-Public Use
  Company Number: None

PATIENT
  Age: 72 Year
  Sex: Male

DRUGS (1)
  1. APIXABAN [Suspect]
     Active Substance: APIXABAN

REACTIONS (4)
  - Melaena [None]
  - Haemoptysis [None]
  - Gastrointestinal haemorrhage [None]
  - Radiation associated haemorrhage [None]

NARRATIVE: CASE EVENT DATE: 20211013
